FAERS Safety Report 11408950 (Version 3)
Quarter: 2015Q3

REPORT INFORMATION
  Report Type: Report from Study
  Country: CA (occurrence: CA)
  Receive Date: 20150824
  Receipt Date: 20150827
  Transmission Date: 20151125
  Serious: Yes (Hospitalization, Other)
  Sender: FDA-Public Use
  Company Number: CA-ROCHE-1450100

PATIENT
  Age: 79 Year
  Sex: Female

DRUGS (19)
  1. ACETAMINOPHEN. [Concomitant]
     Active Substance: ACETAMINOPHEN
     Indication: PREMEDICATION
     Route: 048
     Dates: start: 20140813
  2. SULFASALAZINE. [Concomitant]
     Active Substance: SULFASALAZINE
  3. LOSARTAN. [Concomitant]
     Active Substance: LOSARTAN
  4. FOLIC ACID. [Concomitant]
     Active Substance: FOLIC ACID
  5. TYLENOL [Concomitant]
     Active Substance: ACETAMINOPHEN
  6. NORTRIPTYLINE [Concomitant]
     Active Substance: NORTRIPTYLINE
  7. ADALAT [Concomitant]
     Active Substance: NIFEDIPINE
  8. LIPITOR [Concomitant]
     Active Substance: ATORVASTATIN CALCIUM
  9. RITUXAN [Suspect]
     Active Substance: RITUXIMAB
     Indication: RHEUMATOID ARTHRITIS
     Route: 042
     Dates: start: 20140813
  10. METHYLPREDNISOLONE. [Concomitant]
     Active Substance: METHYLPREDNISOLONE
     Indication: PREMEDICATION
     Route: 042
     Dates: start: 20140813
  11. CLONIDINE. [Concomitant]
     Active Substance: CLONIDINE
  12. FUROSEMIDE. [Concomitant]
     Active Substance: FUROSEMIDE
  13. DIPHENHYDRAMINE HCL [Concomitant]
     Active Substance: DIPHENHYDRAMINE HYDROCHLORIDE
     Indication: PREMEDICATION
     Route: 048
     Dates: start: 20140813
  14. METHOTREXATE [Concomitant]
     Active Substance: METHOTREXATE
  15. PROLIA [Concomitant]
     Active Substance: DENOSUMAB
  16. VOLTAREN [Concomitant]
     Active Substance: DICLOFENAC SODIUM
     Route: 047
  17. LASIX [Concomitant]
     Active Substance: FUROSEMIDE
  18. VENTOLIN [Concomitant]
     Active Substance: ALBUTEROL SULFATE
  19. PANTOLOC [Concomitant]
     Active Substance: PANTOPRAZOLE SODIUM

REACTIONS (7)
  - Polyp [Unknown]
  - Infusion related reaction [Recovered/Resolved]
  - Cardiac disorder [Unknown]
  - Intervertebral disc protrusion [Unknown]
  - Hernia [Unknown]
  - Cyst [Unknown]
  - Fall [Unknown]

NARRATIVE: CASE EVENT DATE: 20140813
